FAERS Safety Report 4334929-X (Version None)
Quarter: 2004Q2

REPORT INFORMATION
  Report Type: 
  Country: None (occurrence: None)
  Receive Date: 20040408
  Receipt Date: 20040331
  Transmission Date: 20050107
  Serious: Yes (Hospitalization)
  Sender: FDA-Public Use
  Company Number: IE-MERCK-0404GBR00015

PATIENT
  Sex: Female

DRUGS (1)
  1. HYZAAR [Suspect]
     Route: 048

REACTIONS (2)
  - ADVERSE EVENT [None]
  - TREATMENT NONCOMPLIANCE [None]
